FAERS Safety Report 5466259-7 (Version None)
Quarter: 2007Q3

REPORT INFORMATION
  Report Type: 
  Country: None (occurrence: None)
  Receive Date: 20070924
  Receipt Date: 20070912
  Transmission Date: 20080115
  Serious: Yes (Hospitalization, Other)
  Sender: FDA-Public Use
  Company Number: PFIZER INC-2007077227

PATIENT
  Age: 76 Year
  Sex: Male
  Weight: 83.5 kg

DRUGS (1)
  1. SUTENT [Suspect]
     Indication: ADENOCARCINOMA PANCREAS
     Route: 048
     Dates: start: 20070514, end: 20070723

REACTIONS (10)
  - ASPARTATE AMINOTRANSFERASE INCREASED [None]
  - BLOOD ALKALINE PHOSPHATASE INCREASED [None]
  - BLOOD CULTURE POSITIVE [None]
  - CONFUSIONAL STATE [None]
  - CYSTITIS [None]
  - HYPERBILIRUBINAEMIA [None]
  - HYPONATRAEMIA [None]
  - KLEBSIELLA INFECTION [None]
  - LIVER FUNCTION TEST ABNORMAL [None]
  - PYREXIA [None]
